FAERS Safety Report 8251239 (Version 2)
Quarter: 2012Q4

REPORT INFORMATION
  Report Type: 
  Country: US (occurrence: US)
  Receive Date: 20111117
  Receipt Date: 20121023
  Transmission Date: 20130627
  Serious: No
  Sender: FDA-Public Use
  Company Number: US-AMGEN-USASP2011003092

PATIENT
  Sex: Female

DRUGS (1)
  1. ENBREL [Suspect]
     Indication: PSORIATIC ARTHROPATHY
     Dosage: 50 mg, qwk
     Dates: start: 20101001

REACTIONS (6)
  - Thyroid disorder [Unknown]
  - Headache [Unknown]
  - Chills [Unknown]
  - Dysuria [Not Recovered/Not Resolved]
  - Sinusitis [Unknown]
  - Injection site pain [Not Recovered/Not Resolved]
